FAERS Safety Report 7278626-X (Version None)
Quarter: 2010Q4

REPORT INFORMATION
  Report Type: 
  Country: None (occurrence: None)
  Receive Date: 20101201
  Receipt Date: 20091007
  Transmission Date: 20110411
  Serious: No
  Sender: FDA-Public Use
  Company Number: 289188

PATIENT
  Age: 58 Year
  Sex: Female

DRUGS (1)
  1. NOVOLOG [Suspect]
     Indication: INSULIN-REQUIRING TYPE 2 DIABETES MELLITUS
     Dosage: 5 IU, AT MEAL TIME, SUBCUTANEOUS
     Route: 058
     Dates: start: 20090101

REACTIONS (3)
  - INJECTION SITE HAEMATOMA [None]
  - INJECTION SITE HAEMORRHAGE [None]
  - INJECTION SITE REACTION [None]
